FAERS Safety Report 9253784 (Version 1)
Quarter: 2013Q2

REPORT INFORMATION
  Report Type: Spontaneous
  Country: US (occurrence: US)
  Receive Date: 20130425
  Receipt Date: 20130425
  Transmission Date: 20140414
  Serious: No
  Sender: FDA-Public Use
  Company Number: US-PFIZER INC-2013129838

PATIENT
  Age: 70 Year
  Sex: Female
  Weight: 61.22 kg

DRUGS (6)
  1. LYRICA [Suspect]
     Indication: PAIN
     Dosage: 50 MG, 3X/DAY
     Dates: start: 2007
  2. PERCOCET [Suspect]
     Indication: PAIN
     Dosage: 7.5/325 MG, 3X/DAY
  3. TOPROL [Concomitant]
     Indication: BLOOD PRESSURE ABNORMAL
     Dosage: 100 MG, 1X/DAY
  4. CYMBALTA [Concomitant]
     Indication: NERVOUS SYSTEM DISORDER
     Dosage: 50 MG, UNK
  5. MEGACE ES [Concomitant]
     Dosage: 625/5 MG/ML, UNK
  6. WARFARIN [Concomitant]
     Indication: THROMBOSIS
     Dosage: 4 MG, UNK

REACTIONS (1)
  - Drug ineffective [Unknown]
